FAERS Safety Report 25337663 (Version 2)
Quarter: 2025Q4

REPORT INFORMATION
  Report Type: Spontaneous
  Country: US (occurrence: US)
  Receive Date: 20250520
  Receipt Date: 20251024
  Transmission Date: 20260118
  Serious: No
  Sender: SEPTODONT
  Company Number: US-SEPTODONT-2024019169

PATIENT
  Sex: Male

DRUGS (9)
  1. SEPTOCAINE [Suspect]
     Active Substance: ARTICAINE HYDROCHLORIDE\EPINEPHRINE BITARTRATE
     Indication: Dental local anaesthesia
     Dosage: 0.5 CARPULE FOR INFILTRATION
     Route: 004
  2. SEPTOCAINE [Suspect]
     Active Substance: ARTICAINE HYDROCHLORIDE\EPINEPHRINE BITARTRATE
     Indication: Dental local anaesthesia
     Dosage: ~0.25 FOR PDL INJECTIONS
     Route: 004
  3. CARBOCAINE [Suspect]
     Active Substance: MEPIVACAINE HYDROCHLORIDE
     Indication: Dental local anaesthesia
     Dosage: 1 CARPULE
     Route: 004
  4. LIDOCAINE [Suspect]
     Active Substance: LIDOCAINE
     Indication: Dental local anaesthesia
     Dosage: 1 CARPULE
     Route: 004
  5. LIDOCAINE [Suspect]
     Active Substance: LIDOCAINE
     Indication: Dental local anaesthesia
     Dosage: 0.75 CARPULE FOR GREATER PALATINE BLOCK AND LINGUAL INFILTRATION
     Route: 004
  6. Tamsolin [Concomitant]
  7. MELOXICAM [Concomitant]
     Active Substance: MELOXICAM
  8. PAROXETINE [Concomitant]
     Active Substance: PAROXETINE
  9. LORATADINE [Concomitant]
     Active Substance: LORATADINE

REACTIONS (1)
  - Drug ineffective [Unknown]
